FAERS Safety Report 9517298 (Version 2)
Quarter: 2013Q3

REPORT INFORMATION
  Report Type: Spontaneous
  Country: US (occurrence: US)
  Receive Date: 20130911
  Receipt Date: 20130923
  Transmission Date: 20140515
  Serious: No
  Sender: FDA-Public Use
  Company Number: US-ASTRAZENECA-2013SE59057

PATIENT
  Age: 58 Year
  Sex: Male
  Weight: 74.8 kg

DRUGS (5)
  1. SYMBICORT [Suspect]
     Indication: CHRONIC OBSTRUCTIVE PULMONARY DISEASE
     Dosage: 160/4.5, 2 PUFFS BID
     Route: 055
  2. SINGULAIR [Concomitant]
  3. DIOVAN [Concomitant]
     Indication: BLOOD PRESSURE ABNORMAL
  4. VIT E [Concomitant]
  5. GUAFENISIN [Concomitant]

REACTIONS (3)
  - Chronic obstructive pulmonary disease [Unknown]
  - Drug dose omission [Unknown]
  - Intentional drug misuse [Unknown]
